FAERS Safety Report 19423285 (Version 1)
Quarter: 2021Q2

REPORT INFORMATION
  Report Type: Spontaneous
  Country: US (occurrence: US)
  Receive Date: 20210616
  Receipt Date: 20210616
  Transmission Date: 20210717
  Serious: No
  Sender: FDA-Public Use
  Company Number: US-PFIZER INC-2021302754

PATIENT
  Age: 60 Year
  Sex: Female

DRUGS (1)
  1. IBRANCE [Suspect]
     Active Substance: PALBOCICLIB
     Indication: BREAST CANCER FEMALE
     Dosage: 125 MG, CYCLIC (1 TAB BY MOUTH DAILY 3 WEEKS ON ONE WEEK OFF)
     Route: 048
     Dates: start: 20210318

REACTIONS (4)
  - Nausea [Unknown]
  - Pain [Unknown]
  - Bone pain [Unknown]
  - Asthenia [Unknown]

NARRATIVE: CASE EVENT DATE: 2021
